FAERS Safety Report 9286796 (Version 1)
Quarter: 2013Q2

REPORT INFORMATION
  Report Type: Spontaneous
  Country: None (occurrence: None)
  Receive Date: 20130509
  Receipt Date: 20130509
  Transmission Date: 20140414
  Serious: Yes (Death, Hospitalization)
  Sender: FDA-Public Use
  Company Number: AG-2013-1567

PATIENT
  Age: 76 Year
  Sex: Male
  Weight: 73 kg

DRUGS (2)
  1. CHLORAMBUCIL (CHLORAMBUCIL) (UNKNOWN) [Suspect]
     Indication: CHRONIC LYMPHOCYTIC LEUKAEMIA
     Dosage: 0.5 MILLIGRAM (14 MILLIGRAM, 1 IN 28 DAYS), ORAL
     Route: 048
     Dates: start: 20110929, end: 20120220
  2. RITUXIMAB [Suspect]
     Dosage: 375 MILLIGRAM (375 MILLIGRAM, 1 IN 28 DAYS), INTRAVENOUS
     Route: 042
     Dates: start: 20111117, end: 20120216

REACTIONS (3)
  - Jaundice cholestatic [None]
  - Sepsis [None]
  - Multi-organ failure [None]
